FAERS Safety Report 18799271 (Version 3)
Quarter: 2021Q2

REPORT INFORMATION
  Report Type: Spontaneous
  Country: US (occurrence: US)
  Receive Date: 20210128
  Receipt Date: 20210528
  Transmission Date: 20210717
  Serious: Yes (Other)
  Sender: FDA-Public Use
  Company Number: US-GILEAD-2021-0513354

PATIENT
  Sex: Male
  Weight: 119.73 kg

DRUGS (44)
  1. VIDEX [Concomitant]
     Active Substance: DIDANOSINE
  2. PRAVACHOL [Concomitant]
     Active Substance: PRAVASTATIN SODIUM
  3. TRICOR [ADENOSINE] [Concomitant]
     Active Substance: ADENOSINE
  4. AMLODIPINE [Concomitant]
     Active Substance: AMLODIPINE BESYLATE
  5. VIREAD [Suspect]
     Active Substance: TENOFOVIR DISOPROXIL FUMARATE
     Dosage: UNK
     Route: 048
     Dates: start: 2006, end: 2012
  6. BIKTARVY [Concomitant]
     Active Substance: BICTEGRAVIR SODIUM\EMTRICITABINE\TENOFOVIR ALAFENAMIDE FUMARATE
  7. SUSTIVA [Concomitant]
     Active Substance: EFAVIRENZ
  8. CALCITRIOL. [Concomitant]
     Active Substance: CALCITRIOL
  9. LISINOPRIL. [Concomitant]
     Active Substance: LISINOPRIL
  10. ACYCLOVIR [ACICLOVIR] [Concomitant]
     Active Substance: ACYCLOVIR
  11. FLOMAX RELIEF [Concomitant]
     Active Substance: TAMSULOSIN HYDROCHLORIDE
  12. SEVELAMER [Concomitant]
     Active Substance: SEVELAMER
  13. ALENDRONATE [Concomitant]
     Active Substance: ALENDRONATE SODIUM
  14. CALCIUM [Concomitant]
     Active Substance: CALCIUM
  15. VICODIN [Concomitant]
     Active Substance: ACETAMINOPHEN\HYDROCODONE BITARTRATE
  16. MAXZIDE [Concomitant]
     Active Substance: HYDROCHLOROTHIAZIDE\TRIAMTERENE
  17. ROSUVASTATIN. [Concomitant]
     Active Substance: ROSUVASTATIN
  18. VALTREX [Concomitant]
     Active Substance: VALACYCLOVIR HYDROCHLORIDE
  19. VIREAD [Suspect]
     Active Substance: TENOFOVIR DISOPROXIL FUMARATE
     Indication: HIV INFECTION
     Dosage: UNK
     Route: 048
     Dates: start: 2005
  20. TRUVADA [Suspect]
     Active Substance: EMTRICITABINE\TENOFOVIR DISOPROXIL FUMARATE
     Indication: HIV INFECTION
     Dosage: UNK
     Route: 048
     Dates: start: 2005, end: 201803
  21. KALETRA [Concomitant]
     Active Substance: LOPINAVIR\RITONAVIR
  22. TRIUMEQ [Concomitant]
     Active Substance: ABACAVIR SULFATE\DOLUTEGRAVIR SODIUM\LAMIVUDINE
  23. DICLOFENAC [Concomitant]
     Active Substance: DICLOFENAC
  24. CRESTOR [Concomitant]
     Active Substance: ROSUVASTATIN CALCIUM
  25. EFFEXOR [Concomitant]
     Active Substance: VENLAFAXINE HYDROCHLORIDE
  26. ASPIRIN (E.C.) [Concomitant]
     Active Substance: ASPIRIN
  27. SODIUM BICARBONATE. [Concomitant]
     Active Substance: SODIUM BICARBONATE
  28. PREZCOBIX [Concomitant]
     Active Substance: COBICISTAT\DARUNAVIR ETHANOLATE
  29. PREZISTA [Concomitant]
     Active Substance: DARUNAVIR ETHANOLATE
  30. ZERIT [Concomitant]
     Active Substance: STAVUDINE
  31. VITAMIN D3 [Concomitant]
     Active Substance: CHOLECALCIFEROL
  32. DOXEPIN [Concomitant]
     Active Substance: DOXEPIN
  33. MARIJUANA [Concomitant]
     Active Substance: CANNABIS SATIVA SUBSP. INDICA TOP
  34. THIAMINE. [Concomitant]
     Active Substance: THIAMINE
  35. CARVEDILOL. [Concomitant]
     Active Substance: CARVEDILOL
  36. EPIVIR [Concomitant]
     Active Substance: LAMIVUDINE
  37. NORVIR [Concomitant]
     Active Substance: RITONAVIR
  38. CYMBALTA [Concomitant]
     Active Substance: DULOXETINE HYDROCHLORIDE
  39. SEROQUEL [Concomitant]
     Active Substance: QUETIAPINE FUMARATE
  40. RISPERIDONE. [Concomitant]
     Active Substance: RISPERIDONE
  41. TIVICAY [Concomitant]
     Active Substance: DOLUTEGRAVIR SODIUM
  42. GABAPENTIN. [Concomitant]
     Active Substance: GABAPENTIN
  43. VALACYCLOVIR [Concomitant]
     Active Substance: VALACYCLOVIR HYDROCHLORIDE
  44. CHANTIX [Concomitant]
     Active Substance: VARENICLINE TARTRATE

REACTIONS (14)
  - Foot fracture [Recovered/Resolved]
  - Emotional distress [Not Recovered/Not Resolved]
  - Osteopenia [Not Recovered/Not Resolved]
  - Foot fracture [Recovered/Resolved]
  - Anhedonia [Not Recovered/Not Resolved]
  - Bone density decreased [Not Recovered/Not Resolved]
  - Nephropathy [Not Recovered/Not Resolved]
  - Jaw fracture [Not Recovered/Not Resolved]
  - Pain [Not Recovered/Not Resolved]
  - Depression [Not Recovered/Not Resolved]
  - Chronic kidney disease [Not Recovered/Not Resolved]
  - Osteonecrosis [Not Recovered/Not Resolved]
  - Anxiety [Not Recovered/Not Resolved]
  - Osteoporosis [Not Recovered/Not Resolved]

NARRATIVE: CASE EVENT DATE: 2010
